FAERS Safety Report 8003768-0 (Version None)
Quarter: 2011Q4

REPORT INFORMATION
  Report Type: 
  Country: None (occurrence: None)
  Receive Date: 20111222
  Receipt Date: 20111216
  Transmission Date: 20120403
  Serious: Yes (Other)
  Sender: FDA-Public Use
  Company Number: AT-US-EMD SERONO, INC.-7087724

PATIENT
  Sex: Female

DRUGS (2)
  1. REBIF [Suspect]
     Indication: MULTIPLE SCLEROSIS
     Dates: start: 20100401
  2. REBIF [Suspect]

REACTIONS (5)
  - MULTIPLE SCLEROSIS [None]
  - CHOLELITHIASIS [None]
  - ENDOMETRIOSIS [None]
  - BREAST MASS [None]
  - PYREXIA [None]
